FAERS Safety Report 17053549 (Version 2)
Quarter: 2019Q4

REPORT INFORMATION
  Report Type: Spontaneous
  Country: US (occurrence: US)
  Receive Date: 20191120
  Receipt Date: 20191220
  Transmission Date: 20200122
  Serious: Yes (Other)
  Sender: FDA-Public Use
  Company Number: US-PFIZER INC-2019503815

PATIENT
  Age: 62 Year
  Sex: Male

DRUGS (1)
  1. ELLENCE [Suspect]
     Active Substance: EPIRUBICIN HYDROCHLORIDE
     Indication: OESOPHAGEAL CARCINOMA
     Dosage: 111 MG, UNK

REACTIONS (4)
  - Off label use [Unknown]
  - Iron deficiency anaemia [Unknown]
  - Chronic kidney disease [Unknown]
  - Product use in unapproved indication [Unknown]
